FAERS Safety Report 9841419 (Version 2)
Quarter: 2014Q2

REPORT INFORMATION
  Report Type: Spontaneous
  Country: BR (occurrence: BR)
  Receive Date: 20140124
  Receipt Date: 20140606
  Transmission Date: 20141212
  Serious: Yes (Other)
  Sender: FDA-Public Use
  Company Number: BR-JNJFOC-20140112083

PATIENT
  Age: 29 Year
  Sex: Female
  Weight: 83 kg

DRUGS (2)
  1. REMICADE [Suspect]
     Indication: CROHN^S DISEASE
     Route: 042
     Dates: start: 201305
  2. REMICADE [Suspect]
     Indication: COLITIS
     Route: 042
     Dates: start: 201305

REACTIONS (4)
  - Depression [Recovered/Resolved]
  - Adverse drug reaction [Unknown]
  - Blood pressure decreased [Recovered/Resolved]
  - Infusion related reaction [Recovered/Resolved]
